FAERS Safety Report 20442533 (Version 1)
Quarter: 2022Q1

REPORT INFORMATION
  Report Type: Spontaneous
  Country: US (occurrence: US)
  Receive Date: 20220208
  Receipt Date: 20220208
  Transmission Date: 20220424
  Serious: No
  Sender: FDA-Public Use
  Company Number: US-ALLERGAN-2135110US

PATIENT
  Sex: Female

DRUGS (1)
  1. VIIBRYD [Suspect]
     Active Substance: VILAZODONE HYDROCHLORIDE
     Indication: Perinatal depression
     Dosage: 40 MG
     Dates: start: 2006

REACTIONS (9)
  - Feeling of despair [Unknown]
  - Chills [Unknown]
  - Oropharyngeal pain [Unknown]
  - Pruritus [Unknown]
  - Autoscopy [Unknown]
  - Irritability [Unknown]
  - Vomiting [Unknown]
  - Nausea [Unknown]
  - Fatigue [Unknown]

NARRATIVE: CASE EVENT DATE: 20211013
